FAERS Safety Report 7060487-5 (Version None)
Quarter: 2010Q4

REPORT INFORMATION
  Report Type: 
  Country: None (occurrence: None)
  Receive Date: 20101025
  Receipt Date: 20101013
  Transmission Date: 20110411
  Serious: Yes (Hospitalization)
  Sender: FDA-Public Use
  Company Number: JP-PFIZER INC-2010134482

PATIENT
  Age: 61 Year
  Sex: Female

DRUGS (4)
  1. CELECOX [Suspect]
     Dosage: UNK
     Route: 048
     Dates: start: 20100823, end: 20100830
  2. SOLON [Concomitant]
     Dosage: UNK
     Route: 048
     Dates: start: 20100823, end: 20100830
  3. DEPO-MEDROL [Concomitant]
     Dosage: UNK
     Dates: start: 20100823
  4. XYLOCAINE [Concomitant]
     Dosage: UNK
     Dates: start: 20100823

REACTIONS (1)
  - OCULOMUCOCUTANEOUS SYNDROME [None]
